FAERS Safety Report 16049920 (Version 4)
Quarter: 2022Q2

REPORT INFORMATION
  Report Type: Other
  Country: CA (occurrence: CA)
  Receive Date: 20190308
  Receipt Date: 20220630
  Transmission Date: 20220721
  Serious: Yes (Hospitalization, Other)
  Sender: FDA-Public Use
  Company Number: CA-002147023-PHHY2018CA174067

PATIENT
  Age: 56 Year
  Sex: Female
  Weight: 81 kg

DRUGS (19)
  1. XOLAIR [Suspect]
     Active Substance: OMALIZUMAB
     Indication: Asthma
     Route: 058
     Dates: start: 20180622
  2. XOLAIR [Suspect]
     Active Substance: OMALIZUMAB
     Route: 058
     Dates: start: 20181120
  3. XOLAIR [Suspect]
     Active Substance: OMALIZUMAB
     Route: 058
     Dates: start: 20181218
  4. XOLAIR [Suspect]
     Active Substance: OMALIZUMAB
     Route: 058
     Dates: start: 20190102
  5. XOLAIR [Suspect]
     Active Substance: OMALIZUMAB
     Route: 058
     Dates: start: 20190116
  6. XOLAIR [Suspect]
     Active Substance: OMALIZUMAB
     Route: 058
     Dates: start: 20190425
  7. XOLAIR [Suspect]
     Active Substance: OMALIZUMAB
     Route: 058
  8. XOLAIR [Suspect]
     Active Substance: OMALIZUMAB
     Route: 058
  9. ESOMEPRAZOLE [Concomitant]
     Active Substance: ESOMEPRAZOLE
     Indication: Gastrooesophageal reflux disease
     Route: 048
     Dates: start: 2013
  10. SYNTHROID [Concomitant]
     Active Substance: LEVOTHYROXINE SODIUM
     Indication: Hypothyroidism
     Route: 048
     Dates: start: 1998
  11. SPIRIVA [Concomitant]
     Active Substance: TIOTROPIUM BROMIDE MONOHYDRATE
     Indication: Asthma
     Dosage: 2 DF, QD
     Route: 055
     Dates: start: 2016
  12. ASPIRIN [Concomitant]
     Active Substance: ASPIRIN
     Indication: Cardiac disorder
     Route: 048
     Dates: start: 2013
  13. SINGULAIR [Concomitant]
     Active Substance: MONTELUKAST SODIUM
     Indication: Asthma
     Dosage: 1 DF, QD
     Route: 048
     Dates: start: 2013
  14. AZITHROMYCIN ANHYDROUS [Concomitant]
     Active Substance: AZITHROMYCIN ANHYDROUS
     Indication: Infection
     Dosage: 1 DF, UNK
     Route: 048
     Dates: start: 2016
  15. SYMBICORT [Concomitant]
     Active Substance: BUDESONIDE\FORMOTEROL FUMARATE DIHYDRATE
     Indication: Asthma
     Route: 055
  16. RHINOCORT (CANADA) [Concomitant]
     Indication: Sinus disorder
     Dosage: 4 DF, BID
     Route: 045
     Dates: start: 2015
  17. RHINOCORT (CANADA) [Concomitant]
     Indication: Hypersensitivity
  18. VENTOLIN [Concomitant]
     Active Substance: ALBUTEROL SULFATE
     Indication: Asthma
     Dosage: 2 DF, UNK
     Route: 055
     Dates: start: 2013
  19. IMDUR [Concomitant]
     Active Substance: ISOSORBIDE MONONITRATE

REACTIONS (18)
  - Mast cell activation syndrome [Unknown]
  - Neoplasm malignant [Unknown]
  - Rhinorrhoea [Not Recovered/Not Resolved]
  - Dyspnoea [Not Recovered/Not Resolved]
  - Blood potassium abnormal [Unknown]
  - Sputum discoloured [Not Recovered/Not Resolved]
  - Infection [Unknown]
  - Nasal discharge discolouration [Not Recovered/Not Resolved]
  - Herpes zoster [Unknown]
  - Pneumonitis [Unknown]
  - Cardiomegaly [Unknown]
  - Adrenal disorder [Unknown]
  - Bronchitis [Not Recovered/Not Resolved]
  - Wheezing [Unknown]
  - Productive cough [Not Recovered/Not Resolved]
  - Asthma [Unknown]
  - Wrong technique in product usage process [Unknown]
  - Weight increased [Unknown]

NARRATIVE: CASE EVENT DATE: 20181217
